FAERS Safety Report 8607363-1 (Version None)
Quarter: 2012Q3

REPORT INFORMATION
  Report Type: 
  Country: None (occurrence: None)
  Receive Date: 20120821
  Receipt Date: 20120817
  Transmission Date: 20120928
  Serious: Yes (Other)
  Sender: FDA-Public Use
  Company Number: US-PFIZER INC-2012203334

PATIENT
  Sex: Male

DRUGS (4)
  1. SEROQUEL [Suspect]
     Indication: BIPOLAR II DISORDER
     Dosage: 300 MG, DAILY
  2. SEROQUEL [Suspect]
     Indication: DEPRESSION
  3. PRISTIQ [Suspect]
     Indication: BIPOLAR II DISORDER
     Dosage: 100 MG, DAILY
  4. PRISTIQ [Suspect]
     Indication: DEPRESSION

REACTIONS (1)
  - WEIGHT INCREASED [None]
